FAERS Safety Report 9174178 (Version 1)
Quarter: 2013Q1

REPORT INFORMATION
  Report Type: Spontaneous
  Country: CA (occurrence: CA)
  Receive Date: 20130320
  Receipt Date: 20130320
  Transmission Date: 20140127
  Serious: Yes (Other)
  Sender: FDA-Public Use
  Company Number: CHPA2013CA004684

PATIENT
  Sex: Female

DRUGS (1)
  1. BUCKLEY^S UNKNOWN [Suspect]
     Indication: NASOPHARYNGITIS
     Dosage: UNK, AS DIRECTED
     Route: 048
     Dates: end: 2012

REACTIONS (1)
  - Nasopharyngitis [Recovering/Resolving]
